FAERS Safety Report 11126834 (Version 5)
Quarter: 2015Q3

REPORT INFORMATION
  Report Type: Report from Study
  Country: US (occurrence: US)
  Receive Date: 20150520
  Receipt Date: 20150818
  Transmission Date: 20151125
  Serious: Yes (Hospitalization)
  Sender: FDA-Public Use
  Company Number: US-ACTELION-A-NJ2015-118000

PATIENT
  Age: 72 Year
  Sex: Male

DRUGS (5)
  1. TYVASO [Concomitant]
     Active Substance: TREPROSTINIL
  2. REMODULIN [Concomitant]
     Active Substance: TREPROSTINIL
  3. OXYGEN. [Concomitant]
     Active Substance: OXYGEN
  4. TRACLEER [Suspect]
     Active Substance: BOSENTAN
     Indication: PULMONARY ARTERIAL HYPERTENSION
     Dosage: UNK
     Route: 048
  5. ADCIRCA [Concomitant]
     Active Substance: TADALAFIL

REACTIONS (9)
  - Oxygen saturation decreased [Unknown]
  - Seizure [Unknown]
  - Procedural complication [Unknown]
  - Cerebrovascular accident [Unknown]
  - Mechanical ventilation [Unknown]
  - General physical health deterioration [Unknown]
  - Dyspnoea [Unknown]
  - Thrombosis prophylaxis [Unknown]
  - Pneumonia [Unknown]
